FAERS Safety Report 8942781 (Version 1)
Quarter: 2012Q4

REPORT INFORMATION
  Report Type: Spontaneous
  Country: US (occurrence: None)
  Receive Date: 20121204
  Receipt Date: 20121204
  Transmission Date: 20130627
  Serious: Yes (Other)
  Sender: FDA-Public Use
  Company Number: None

PATIENT
  Age: 62 Year
  Sex: Male
  Weight: 57.61 kg

DRUGS (1)
  1. BETAMETHASONE [Suspect]
     Dates: start: 20120725, end: 20120725

REACTIONS (3)
  - Postoperative wound infection [None]
  - Enterococcal infection [None]
  - Incision site infection [None]
